FAERS Safety Report 12460352 (Version 1)
Quarter: 2016Q2

REPORT INFORMATION
  Report Type: Spontaneous
  Country: US (occurrence: US)
  Receive Date: 20160613
  Receipt Date: 20160613
  Transmission Date: 20160815
  Serious: No
  Sender: FDA-Public Use
  Company Number: US-ABBVIE-16P-163-1586727-00

PATIENT
  Age: 74 Year
  Sex: Female

DRUGS (7)
  1. WARFARIN [Concomitant]
     Active Substance: WARFARIN
     Indication: PRODUCT USED FOR UNKNOWN INDICATION
  2. AMLODIPINE [Concomitant]
     Active Substance: AMLODIPINE BESYLATE
     Indication: PRODUCT USED FOR UNKNOWN INDICATION
  3. DIGOXIN. [Concomitant]
     Active Substance: DIGOXIN
     Indication: PRODUCT USED FOR UNKNOWN INDICATION
  4. LEVOXYL [Concomitant]
     Active Substance: LEVOTHYROXINE SODIUM
     Indication: PRODUCT USED FOR UNKNOWN INDICATION
  5. POTASSIUM CHLORIDE EXTENDED-RELEASE [Suspect]
     Active Substance: POTASSIUM CHLORIDE
     Indication: ATRIAL FIBRILLATION
     Route: 048
     Dates: start: 20160315, end: 20160316
  6. HCTZ [Concomitant]
     Active Substance: HYDROCHLOROTHIAZIDE
     Indication: PRODUCT USED FOR UNKNOWN INDICATION
  7. TOPROL XL [Concomitant]
     Active Substance: METOPROLOL SUCCINATE
     Indication: PRODUCT USED FOR UNKNOWN INDICATION

REACTIONS (4)
  - Hyperchlorhydria [Recovered/Resolved]
  - Dysphagia [Recovered/Resolved]
  - Heart rate increased [Recovered/Resolved]
  - Tension headache [Recovered/Resolved]

NARRATIVE: CASE EVENT DATE: 20160315
